FAERS Safety Report 24526818 (Version 1)
Quarter: 2024Q4

REPORT INFORMATION
  Report Type: Report from Study
  Country: US (occurrence: US)
  Receive Date: 20241021
  Receipt Date: 20241021
  Transmission Date: 20250115
  Serious: No
  Sender: ROCHE
  Company Number: US-ROCHE-3531651

PATIENT
  Age: 61 Year
  Sex: Male

DRUGS (1)
  1. ZELBORAF [Suspect]
     Active Substance: VEMURAFENIB
     Indication: Hairy cell leukaemia
     Dosage: TAKE 4 TABLET(S) BY MOUTH EVERY 12 HOURS. TAKE WHOLE WITH WATER ON AN EMPTY STOMACH.
     Route: 048

REACTIONS (2)
  - Confusional state [Unknown]
  - Off label use [Unknown]
